FAERS Safety Report 6996931-9 (Version None)
Quarter: 2010Q3

REPORT INFORMATION
  Report Type: 
  Country: None (occurrence: None)
  Receive Date: 20100918
  Receipt Date: 20090723
  Transmission Date: 20110219
  Serious: No
  Sender: FDA-Public Use
  Company Number: US-WYE-H10309009

PATIENT
  Sex: Female
  Weight: 54.48 kg

DRUGS (2)
  1. EFFEXOR XR [Suspect]
     Indication: DEPRESSION
     Route: 048
     Dates: start: 20080701
  2. PROTONIX [Concomitant]

REACTIONS (7)
  - CONDITION AGGRAVATED [None]
  - CONSTIPATION [None]
  - DYSKINESIA [None]
  - FOOD CRAVING [None]
  - HYPERHIDROSIS [None]
  - INSOMNIA [None]
  - WEIGHT INCREASED [None]
